FAERS Safety Report 20650784 (Version 1)
Quarter: 2022Q1

REPORT INFORMATION
  Report Type: Spontaneous
  Country: US (occurrence: US)
  Receive Date: 20220329
  Receipt Date: 20220329
  Transmission Date: 20220423
  Serious: No
  Sender: FDA-Public Use
  Company Number: US-SEATTLE GENETICS-2021SGN05972

PATIENT
  Age: 16 Year
  Sex: Female

DRUGS (5)
  1. ADCETRIS [Suspect]
     Active Substance: BRENTUXIMAB VEDOTIN
     Indication: Hodgkin^s disease
     Dosage: UNK, Q3WEEKS
     Dates: start: 20211106
  2. DOXORUBICIN [Concomitant]
     Active Substance: DOXORUBICIN
  3. ETOPOSIDE [Concomitant]
     Active Substance: ETOPOSIDE
  4. PREDNISONE [Concomitant]
     Active Substance: PREDNISONE
  5. CYTOXAN [Concomitant]
     Active Substance: CYCLOPHOSPHAMIDE

REACTIONS (1)
  - Off label use [Unknown]

NARRATIVE: CASE EVENT DATE: 20211106
